FAERS Safety Report 21395655 (Version 1)
Quarter: 2022Q3

REPORT INFORMATION
  Report Type: Report from Study
  Country: US (occurrence: US)
  Receive Date: 20220930
  Receipt Date: 20220930
  Transmission Date: 20221027
  Serious: No
  Sender: FDA-Public Use
  Company Number: US-ABBVIE-4129059

PATIENT
  Age: 35 Year
  Sex: Female

DRUGS (1)
  1. SKYRIZI [Suspect]
     Active Substance: RISANKIZUMAB-RZAA
     Indication: Psoriasis
     Route: 058
     Dates: start: 202108

REACTIONS (6)
  - Arthritis [Unknown]
  - Tendon injury [Unknown]
  - Exostosis [Unknown]
  - Psoriasis [Unknown]
  - Nail disorder [Unknown]
  - Fall [Unknown]

NARRATIVE: CASE EVENT DATE: 20220601
